FAERS Safety Report 9448508 (Version 2)
Quarter: 2013Q3

REPORT INFORMATION
  Report Type: Spontaneous
  Country: US (occurrence: US)
  Receive Date: 20130808
  Receipt Date: 20130821
  Transmission Date: 20140515
  Serious: Yes (Other)
  Sender: FDA-Public Use
  Company Number: US-JNJFOC-20130800923

PATIENT
  Sex: Female

DRUGS (1)
  1. NUCYNTA IR [Suspect]
     Indication: PRODUCT USED FOR UNKNOWN INDICATION
     Dosage: 200 MG/TABLET/100 MG/2 TABLETS EVERY 7 HOURS/ORAL
     Route: 048

REACTIONS (4)
  - Surgery [Unknown]
  - Pain [Unknown]
  - Drug prescribing error [Unknown]
  - Inappropriate schedule of drug administration [Unknown]
